FAERS Safety Report 7121697-1 (Version None)
Quarter: 2010Q4

REPORT INFORMATION
  Report Type: 
  Country: None (occurrence: None)
  Receive Date: 20101122
  Receipt Date: 20101122
  Transmission Date: 20110411
  Serious: No
  Sender: FDA-Public Use
  Company Number: None

PATIENT
  Age: 8 Year
  Sex: Female
  Weight: 22.6799 kg

DRUGS (2)
  1. PROCENTRA 5MG/5ML FSC LABO [Suspect]
     Indication: ATTENTION DEFICIT/HYPERACTIVITY DISORDER
     Dosage: 7ML 1 PO 3ML 1 PO
     Route: 048
     Dates: start: 20101114, end: 20101117
  2. PROCENTRA [Concomitant]
     Dosage: 3ML  1  PO

REACTIONS (2)
  - DISTURBANCE IN ATTENTION [None]
  - PRODUCT SUBSTITUTION ISSUE [None]
